FAERS Safety Report 12956029 (Version 1)
Quarter: 2016Q4

REPORT INFORMATION
  Report Type: Spontaneous
  Country: GR (occurrence: GR)
  Receive Date: 20161118
  Receipt Date: 20161118
  Transmission Date: 20170207
  Serious: Yes (Death, Other)
  Sender: FDA-Public Use
  Company Number: GR-CELGENEUS-GRC-2016112086

PATIENT
  Age: 71 Year
  Sex: Male

DRUGS (4)
  1. AZACITIDINE INJECTABLE [Suspect]
     Active Substance: AZACITIDINE
     Dosage: 1/2 DOSE
     Route: 065
  2. AZACITIDINE INJECTABLE [Suspect]
     Active Substance: AZACITIDINE
     Indication: ACUTE MYELOID LEUKAEMIA
     Route: 065
  3. AZACITIDINE INJECTABLE [Suspect]
     Active Substance: AZACITIDINE
     Route: 065
  4. ISONIAZID. [Concomitant]
     Active Substance: ISONIAZID
     Indication: PRODUCT USED FOR UNKNOWN INDICATION
     Route: 065

REACTIONS (10)
  - Liver function test increased [Unknown]
  - Acute myeloid leukaemia [Unknown]
  - Platelet count decreased [Unknown]
  - Vertigo [Unknown]
  - Death [Fatal]
  - Brain oedema [Unknown]
  - General physical health deterioration [Unknown]
  - Haemoglobin decreased [Unknown]
  - Neutrophil count decreased [Unknown]
  - Therapeutic response decreased [Unknown]
